FAERS Safety Report 8663004 (Version 2)
Quarter: 2013Q4

REPORT INFORMATION
  Report Type: Spontaneous
  Country: US (occurrence: US)
  Receive Date: 20120712
  Receipt Date: 20131219
  Transmission Date: 20140711
  Serious: Yes (Other)
  Sender: FDA-Public Use
  Company Number: US-BAYER-2012-069108

PATIENT
  Age: 25 Year
  Sex: Female

DRUGS (2)
  1. GIANVI [Suspect]
     Dosage: UNK
     Dates: start: 201007, end: 201204
  2. YAZ [Suspect]
     Dosage: UNK
     Dates: start: 200703, end: 201006

REACTIONS (7)
  - Cholecystectomy [None]
  - Cholecystitis [None]
  - Injury [None]
  - Depression [None]
  - Emotional distress [None]
  - Fear of death [None]
  - Nervousness [None]
